FAERS Safety Report 22331614 (Version 1)
Quarter: 2023Q2

REPORT INFORMATION
  Report Type: Spontaneous
  Country: US (occurrence: None)
  Receive Date: 20230516
  Receipt Date: 20230516
  Transmission Date: 20230721
  Serious: Yes (Disabling, Other)
  Sender: FDA-Public Use
  Company Number: None

PATIENT
  Age: 56 Year
  Sex: Male
  Weight: 90.9 kg

DRUGS (2)
  1. GADOBUTROL [Suspect]
     Active Substance: GADOBUTROL
     Indication: X-ray with contrast
     Dates: start: 20230501, end: 20230501
  2. ASPIRIN [Concomitant]
     Active Substance: ASPIRIN

REACTIONS (11)
  - Headache [None]
  - Neck pain [None]
  - Back pain [None]
  - Pain in extremity [None]
  - Chills [None]
  - Pyrexia [None]
  - Night sweats [None]
  - Fatigue [None]
  - Erectile dysfunction [None]
  - Brain fog [None]
  - Visual impairment [None]

NARRATIVE: CASE EVENT DATE: 20230501
